FAERS Safety Report 16037008 (Version 2)
Quarter: 2019Q3

REPORT INFORMATION
  Report Type: Spontaneous
  Country: US (occurrence: US)
  Receive Date: 20190305
  Receipt Date: 20190730
  Transmission Date: 20191004
  Serious: No
  Sender: FDA-Public Use
  Company Number: US-PFIZER INC-2019082799

PATIENT
  Age: 74 Year
  Sex: Male

DRUGS (15)
  1. ATORVASTATIN CALCIUM. [Suspect]
     Active Substance: ATORVASTATIN CALCIUM
     Indication: BLOOD TRIGLYCERIDES INCREASED
  2. METFORMIN [Concomitant]
     Active Substance: METFORMIN HYDROCHLORIDE
     Indication: TYPE 2 DIABETES MELLITUS
     Dosage: UNK
  3. PRAZOSIN. [Concomitant]
     Active Substance: PRAZOSIN
     Indication: SLEEP DISORDER
     Dosage: UNK
  4. MELATONIN [Concomitant]
     Active Substance: MELATONIN
     Indication: SLEEP DISORDER
     Dosage: UNK
  5. LOSARTAN. [Concomitant]
     Active Substance: LOSARTAN
     Indication: BLOOD PRESSURE ABNORMAL
     Dosage: UNK
  6. D-3 [Concomitant]
     Active Substance: CHOLECALCIFEROL
     Dosage: UNK
  7. VITAMIN B12 [Concomitant]
     Active Substance: CYANOCOBALAMIN
     Dosage: UNK
  8. EFFEXOR [Concomitant]
     Active Substance: VENLAFAXINE HYDROCHLORIDE
     Indication: POST-TRAUMATIC STRESS DISORDER
     Dosage: UNK
  9. OMEGA 3 [FISH OIL] [Concomitant]
     Active Substance: FISH OIL
     Dosage: UNK
  10. KLONOPIN [Concomitant]
     Active Substance: CLONAZEPAM
     Indication: POST-TRAUMATIC STRESS DISORDER
     Dosage: UNK
  11. FENOFIBRATE. [Concomitant]
     Active Substance: FENOFIBRATE
     Indication: BLOOD TRIGLYCERIDES INCREASED
     Dosage: 145 MG, UNK
     Dates: start: 201905
  12. GABAPENTIN. [Concomitant]
     Active Substance: GABAPENTIN
     Indication: NEUROPATHY PERIPHERAL
     Dosage: UNK
  13. ASPIRIN [ACETYLSALICYLIC ACID] [Concomitant]
     Active Substance: ASPIRIN
     Indication: THROMBOSIS
     Dosage: UNK
  14. ATORVASTATIN CALCIUM. [Suspect]
     Active Substance: ATORVASTATIN CALCIUM
     Indication: TYPE 2 DIABETES MELLITUS
     Dosage: 40 MG, 1X/DAY
     Dates: start: 1990
  15. ATORVASTATIN CALCIUM. [Suspect]
     Active Substance: ATORVASTATIN CALCIUM
     Indication: BLOOD CHOLESTEROL ABNORMAL

REACTIONS (4)
  - Suspected counterfeit product [Unknown]
  - Drug ineffective [Unknown]
  - Lipids increased [Unknown]
  - Blood triglycerides increased [Recovering/Resolving]
